FAERS Safety Report 18308580 (Version 1)
Quarter: 2020Q3

REPORT INFORMATION
  Report Type: Spontaneous
  Country: US (occurrence: US)
  Receive Date: 20200924
  Receipt Date: 20200924
  Transmission Date: 20201103
  Serious: No
  Sender: FDA-Public Use
  Company Number: US-ALVOGEN-2020-ALVOGEN-108220

PATIENT
  Age: 40 Year
  Sex: Female

DRUGS (1)
  1. GRALISE [Suspect]
     Active Substance: GABAPENTIN
     Indication: DEMYELINATION
     Dosage: 3 TABLETS BY MOUTH ONCE DAILY WITH EVENING MEAL.
     Route: 048

REACTIONS (1)
  - Wrong technique in product usage process [Unknown]
